FAERS Safety Report 9265844 (Version 1)
Quarter: 2013Q2

REPORT INFORMATION
  Report Type: Spontaneous
  Country: US (occurrence: US)
  Receive Date: 20130501
  Receipt Date: 20130501
  Transmission Date: 20140414
  Serious: Yes (Hospitalization)
  Sender: FDA-Public Use
  Company Number: US-ASTRAZENECA-2013SE28890

PATIENT
  Age: 56 Year
  Sex: Female
  Weight: 90.7 kg

DRUGS (10)
  1. NEXIUM [Suspect]
     Indication: GASTROOESOPHAGEAL REFLUX DISEASE
     Route: 048
  2. CRESTOR [Suspect]
     Indication: BLOOD CHOLESTEROL INCREASED
     Route: 048
  3. CRESTOR [Suspect]
     Indication: BLOOD CHOLESTEROL INCREASED
     Route: 048
  4. ADVAIR [Concomitant]
  5. TOPAMAX [Concomitant]
  6. BENICAR [Concomitant]
  7. FLEXERIL [Concomitant]
  8. PERCOCET [Concomitant]
  9. IBUPROFEN [Concomitant]
  10. ASA [Concomitant]

REACTIONS (5)
  - Hypoaesthesia [Unknown]
  - Hypertension [Unknown]
  - Disease recurrence [Unknown]
  - Intentional drug misuse [Unknown]
  - Intentional drug misuse [Unknown]
